FAERS Safety Report 16335247 (Version 4)
Quarter: 2019Q2

REPORT INFORMATION
  Report Type: Report from Study
  Country: None (occurrence: GR)
  Receive Date: 20190521
  Receipt Date: 20190610
  Transmission Date: 20190711
  Serious: Yes (Hospitalization, Other)
  Sender: FDA-Public Use
  Company Number: GR-ABBVIE-19S-066-2789310-00

PATIENT
  Age: 81 Year
  Sex: Female
  Weight: 65 kg

DRUGS (10)
  1. LOPRESOR [Concomitant]
     Active Substance: METOPROLOL
     Indication: HEART RATE INCREASED
     Route: 048
  2. CALCIORAL [Concomitant]
     Indication: OSTEOPOROSIS
     Route: 048
  3. LOSEC [Concomitant]
     Active Substance: OMEPRAZOLE
     Indication: HYPOTHYROIDISM
     Route: 042
     Dates: start: 20190516
  4. DUODOPA [Suspect]
     Active Substance: CARBIDOPA\LEVODOPA
     Dosage: MD:5.5ML; CR:1.9ML/H; ED:1.6ML, ED:2.2ML(ONCE DAILY RIGHT AFTER THE MD)
     Route: 050
     Dates: start: 20190523
  5. ARTICLOX [Concomitant]
     Indication: ANAEMIA
     Route: 050
  6. DEXTROSE. [Concomitant]
     Active Substance: DEXTROSE
     Indication: PRODUCT USED FOR UNKNOWN INDICATION
     Dosage: 40ML/H
     Route: 042
     Dates: start: 20190516
  7. THYROHORMONE [Concomitant]
     Active Substance: LEVOTHYROXINE SODIUM
     Indication: HYPOTHYROIDISM
     Route: 048
  8. DUODOPA [Suspect]
     Active Substance: CARBIDOPA\LEVODOPA
     Dosage: MD:7.5ML; CR:2.2ML/H; ED:2.2ML
     Route: 050
     Dates: start: 20190516, end: 201905
  9. DUODOPA [Suspect]
     Active Substance: CARBIDOPA\LEVODOPA
     Indication: PARKINSON^S DISEASE
     Dosage: MD:9.0ML;CD: 2.2 ML/H TILL THE NOON AND 2.4 ML/H AFTER THE NOON
     Route: 050
     Dates: start: 20150629, end: 20190516
  10. DUODOPA [Suspect]
     Active Substance: CARBIDOPA\LEVODOPA
     Dosage: MD:5.5ML; CR: 1.9ML/H; ED: 1.6ML
     Route: 050
     Dates: start: 201905, end: 20190523

REACTIONS (5)
  - Mass excision [Recovered/Resolved]
  - Embedded device [Recovered/Resolved]
  - Device kink [Unknown]
  - Stoma site hypergranulation [Not Recovered/Not Resolved]
  - Device issue [Recovered/Resolved]

NARRATIVE: CASE EVENT DATE: 20190506
